FAERS Safety Report 19445604 (Version 3)
Quarter: 2021Q3

REPORT INFORMATION
  Report Type: Report from Study
  Country: None (occurrence: US)
  Receive Date: 20210622
  Receipt Date: 20210704
  Transmission Date: 20211014
  Serious: Yes (Other)
  Sender: FDA-Public Use
  Company Number: US-ABBVIE-21K-163-3734251-00

PATIENT
  Sex: Female
  Weight: 68.1 kg

DRUGS (4)
  1. PREDNISONE. [Suspect]
     Active Substance: PREDNISONE
     Indication: PRODUCT USED FOR UNKNOWN INDICATION
     Route: 065
  2. RINVOQ [Suspect]
     Active Substance: UPADACITINIB
     Indication: RHEUMATOID ARTHRITIS
     Dosage: STATED AT LEAST TWO YEARS AGO
     Route: 048
     Dates: start: 2019
  3. RINVOQ [Suspect]
     Active Substance: UPADACITINIB
     Indication: PATHOLOGICAL FRACTURE
  4. RINVOQ [Suspect]
     Active Substance: UPADACITINIB
     Indication: SENILE OSTEOPOROSIS

REACTIONS (9)
  - Squamous cell carcinoma of skin [Recovered/Resolved]
  - Vitamin D decreased [Recovering/Resolving]
  - Urinary tract infection [Recovered/Resolved]
  - Foot fracture [Recovering/Resolving]
  - Stress fracture [Recovering/Resolving]
  - Squamous cell carcinoma of skin [Recovered/Resolved]
  - Arthralgia [Not Recovered/Not Resolved]
  - Fall [Unknown]
  - Stress fracture [Unknown]

NARRATIVE: CASE EVENT DATE: 2020
